FAERS Safety Report 6764382-8 (Version None)
Quarter: 2010Q2

REPORT INFORMATION
  Report Type: 
  Country: None (occurrence: None)
  Receive Date: 20100610
  Receipt Date: 20100527
  Transmission Date: 20101027
  Serious: Yes (Hospitalization)
  Sender: FDA-Public Use
  Company Number: FI-SANOFI-AVENTIS-2010SA030670

PATIENT
  Age: 65 Year
  Sex: Male

DRUGS (1)
  1. ALFUZOSIN HCL [Suspect]
     Indication: DRUG USE FOR UNKNOWN INDICATION
     Route: 048

REACTIONS (6)
  - CONCUSSION [None]
  - HOT FLUSH [None]
  - LOSS OF CONSCIOUSNESS [None]
  - PAIN [None]
  - RIB FRACTURE [None]
  - ROAD TRAFFIC ACCIDENT [None]
